FAERS Safety Report 21130841 (Version 1)
Quarter: 2022Q3

REPORT INFORMATION
  Report Type: Report from Study
  Country: NG (occurrence: NG)
  Receive Date: 20220726
  Receipt Date: 20220726
  Transmission Date: 20221027
  Serious: Yes (Hospitalization, Other)
  Sender: FDA-Public Use
  Company Number: NG-NOVARTISPH-NVSC2022NG168413

PATIENT
  Age: 40 Year
  Sex: Female

DRUGS (1)
  1. ARTEMETHER\LUMEFANTRINE [Suspect]
     Active Substance: ARTEMETHER\LUMEFANTRINE
     Indication: Product used for unknown indication
     Dosage: UNK (4 TABLETS TO START AND 4, AFTER 8 HOURS THEN 4 MORNING AND 4 IN THE NIGHT)
     Route: 065
     Dates: start: 20220303, end: 20220305

REACTIONS (2)
  - Myocardial infarction [Recovered/Resolved]
  - Inappropriate schedule of product administration [Recovered/Resolved]
